FAERS Safety Report 7267437-7 (Version None)
Quarter: 2011Q1

REPORT INFORMATION
  Report Type: 
  Country: None (occurrence: None)
  Receive Date: 20110201
  Receipt Date: 20110124
  Transmission Date: 20110831
  Serious: Yes (Other)
  Sender: FDA-Public Use
  Company Number: US-JNJFOC-20101005074

PATIENT
  Sex: Male

DRUGS (7)
  1. SIMVASTATIN [Concomitant]
     Indication: BLOOD CHOLESTEROL
  2. METFORMIN HCL [Concomitant]
     Indication: DIABETES MELLITUS
  3. ALPRAZOLAM [Concomitant]
     Indication: ANXIETY
  4. HYDROCHLOROTHIAZIDE [Concomitant]
     Indication: BLOOD PRESSURE
  5. VITAMIN D [Concomitant]
     Indication: BONE DISORDER
  6. LEVAQUIN [Suspect]
     Indication: RESPIRATORY TRACT INFECTION
     Route: 048
  7. CYMBALTA [Concomitant]
     Indication: PANIC ATTACK

REACTIONS (4)
  - HYPERTENSION [None]
  - BURSITIS [None]
  - BLOOD GLUCOSE INCREASED [None]
  - ROTATOR CUFF SYNDROME [None]
